FAERS Safety Report 10642197 (Version 8)
Quarter: 2016Q3

REPORT INFORMATION
  Report Type: Report from Study
  Country: US (occurrence: US)
  Receive Date: 20141210
  Receipt Date: 20160707
  Transmission Date: 20161109
  Serious: Yes (Other)
  Sender: FDA-Public Use
  Company Number: US-AMGEN-USASP2014093187

PATIENT
  Age: 72 Year
  Sex: Female

DRUGS (2)
  1. ENBREL [Suspect]
     Active Substance: ETANERCEPT
     Indication: PSORIATIC ARTHROPATHY
     Dosage: 50 MG, QWK
     Route: 065
     Dates: start: 20141022
  2. ENBREL [Suspect]
     Active Substance: ETANERCEPT
     Indication: PSORIASIS
     Dosage: UNK
     Route: 065

REACTIONS (29)
  - Rhinorrhoea [Unknown]
  - Body temperature increased [Unknown]
  - Condition aggravated [Not Recovered/Not Resolved]
  - Food allergy [Unknown]
  - Injection site pain [Not Recovered/Not Resolved]
  - Smoke sensitivity [Unknown]
  - Eye pruritus [Unknown]
  - Psoriasis [Unknown]
  - Headache [Unknown]
  - General physical health deterioration [Unknown]
  - Memory impairment [Unknown]
  - Hyperhidrosis [Unknown]
  - Eye irritation [Unknown]
  - Keloid scar [Unknown]
  - Drug ineffective [Unknown]
  - Cataract operation [Unknown]
  - Abdominal discomfort [Not Recovered/Not Resolved]
  - Chest discomfort [Unknown]
  - Gait disturbance [Unknown]
  - Nasal discomfort [Unknown]
  - Throat irritation [Unknown]
  - Hot flush [Unknown]
  - Eye pain [Not Recovered/Not Resolved]
  - Arthritis [Unknown]
  - Skin plaque [Not Recovered/Not Resolved]
  - Depression [Unknown]
  - Insomnia [Unknown]
  - Pain in extremity [Unknown]
  - Mental disorder [Unknown]

NARRATIVE: CASE EVENT DATE: 2014
